FAERS Safety Report 8573945-9 (Version None)
Quarter: 2012Q2

REPORT INFORMATION
  Report Type: 
  Country: None (occurrence: None)
  Receive Date: 20120423
  Receipt Date: 20090608
  Transmission Date: 20120825
  Serious: Yes (Death)
  Sender: FDA-Public Use
  Company Number: PHEH2007US10218

PATIENT
  Age: 80 Year
  Sex: Female

DRUGS (4)
  1. DYAZIDE [Concomitant]
  2. PRILOSEC [Concomitant]
  3. PREDNISONE TAB [Concomitant]
  4. EXJADE [Suspect]
     Indication: CHRONIC LYMPHOCYTIC LEUKAEMIA REFRACTORY
     Dosage: 1000 MG, QD, ORAL
     Route: 048
     Dates: start: 20070427

REACTIONS (1)
  - CHRONIC LYMPHOCYTIC LEUKAEMIA REFRACTORY [None]
